FAERS Safety Report 4720732-5 (Version None)
Quarter: 2005Q3

REPORT INFORMATION
  Report Type: 
  Country: None (occurrence: None)
  Receive Date: 20050721
  Receipt Date: 20050712
  Transmission Date: 20060218
  Serious: Yes (Life-Threatening, Hospitalization, Disabling)
  Sender: FDA-Public Use
  Company Number: BG-GLAXOSMITHKLINE-B0387394A

PATIENT
  Age: 57 Year
  Sex: Male
  Weight: 69 kg

DRUGS (1)
  1. ROSIGLITAZONE [Suspect]
     Dosage: 8MG PER DAY
     Route: 048
     Dates: start: 20050401, end: 20050708

REACTIONS (6)
  - APHASIA [None]
  - BLOOD CREATINE PHOSPHOKINASE INCREASED [None]
  - BLOOD LACTATE DEHYDROGENASE INCREASED [None]
  - HEMIPARESIS [None]
  - ISCHAEMIC STROKE [None]
  - RED BLOOD CELL COUNT DECREASED [None]
